FAERS Safety Report 17291360 (Version 1)
Quarter: 2020Q1

REPORT INFORMATION
  Report Type: Spontaneous
  Country: GB (occurrence: GB)
  Receive Date: 20200121
  Receipt Date: 20200121
  Transmission Date: 20200409
  Serious: Yes (Other)
  Sender: FDA-Public Use
  Company Number: GB-JNJFOC-20200114841

PATIENT
  Sex: Female

DRUGS (1)
  1. REGAINE 5% FOAM [Suspect]
     Active Substance: MINOXIDIL
     Indication: PRODUCT USED FOR UNKNOWN INDICATION
     Route: 065

REACTIONS (3)
  - Eye haemorrhage [Unknown]
  - Application site pruritus [Recovering/Resolving]
  - Application site erythema [Unknown]
